FAERS Safety Report 7942832-9 (Version None)
Quarter: 2011Q4

REPORT INFORMATION
  Report Type: 
  Country: None (occurrence: None)
  Receive Date: 20111122
  Receipt Date: 20110701
  Transmission Date: 20120403
  Serious: No
  Sender: FDA-Public Use
  Company Number: PHHY2011US59605

PATIENT

DRUGS (1)
  1. GILENYA [Suspect]
     Dosage: 0.5 MG, QD

REACTIONS (1)
  - CD4 LYMPHOCYTES DECREASED [None]
